FAERS Safety Report 21409602 (Version 1)
Quarter: 2022Q4

REPORT INFORMATION
  Report Type: Spontaneous
  Country: US (occurrence: US)
  Receive Date: 20221004
  Receipt Date: 20221004
  Transmission Date: 20230113
  Serious: Yes (Hospitalization, Other)
  Sender: FDA-Public Use
  Company Number: US-BRISTOL-MYERS SQUIBB COMPANY-2022-114314

PATIENT
  Age: 70 Year
  Sex: Male

DRUGS (2)
  1. ELIQUIS [Suspect]
     Active Substance: APIXABAN
     Dosage: DOSE : 1 TABLET; FREQ : TWICE DAILY
     Route: 048
  2. METHOTREXATE SODIUM [Suspect]
     Active Substance: METHOTREXATE SODIUM
     Dosage: UNK
     Route: 065

REACTIONS (8)
  - Irritable bowel syndrome [Unknown]
  - Blood pressure abnormal [Unknown]
  - Pulse abnormal [Unknown]
  - Asthenia [Unknown]
  - Cardiac disorder [Unknown]
  - Thrombosis [Unknown]
  - Tooth loss [Unknown]
  - Gingival recession [Unknown]

NARRATIVE: CASE EVENT DATE: 20220901
